FAERS Safety Report 6074268-2 (Version None)
Quarter: 2009Q1

REPORT INFORMATION
  Report Type: 
  Country: None (occurrence: None)
  Receive Date: 20090211
  Receipt Date: 20090203
  Transmission Date: 20090719
  Serious: Yes (Other)
  Sender: FDA-Public Use
  Company Number: JP-ASTRAZENECA-2009AP00975

PATIENT
  Age: 68 Year
  Sex: Female

DRUGS (4)
  1. OMEPRAL INJECTION 20 [Suspect]
     Route: 042
     Dates: start: 20090115, end: 20090126
  2. PACLITAXEL [Suspect]
     Indication: OVARIAN CANCER
     Route: 042
     Dates: start: 20090120, end: 20090120
  3. PLATOSIN [Suspect]
     Indication: OVARIAN CANCER
     Route: 042
     Dates: start: 20090121, end: 20090121
  4. MEROPEN [Concomitant]
     Dosage: NOMBER OF SEPARATE DOSES UNKNOWN
     Route: 041
     Dates: start: 20090115

REACTIONS (2)
  - PLATELET COUNT DECREASED [None]
  - WHITE BLOOD CELL COUNT DECREASED [None]
